FAERS Safety Report 7641502-4 (Version None)
Quarter: 2011Q3

REPORT INFORMATION
  Report Type: 
  Country: None (occurrence: None)
  Receive Date: 20110728
  Receipt Date: 20110722
  Transmission Date: 20111222
  Serious: Yes (Death)
  Sender: FDA-Public Use
  Company Number: DK-ROXANE LABORATORIES, INC.-2011-RO-01044RO

PATIENT
  Age: 64 Year

DRUGS (3)
  1. METRONIDAZOLE [Suspect]
  2. AMLODIPINE BESYLATE [Suspect]
  3. DIPYRIDAMOLE [Suspect]

REACTIONS (1)
  - DEATH [None]
